FAERS Safety Report 4329050-0 (Version None)
Quarter: 2004Q1

REPORT INFORMATION
  Report Type: 
  Country: None (occurrence: None)
  Receive Date: 20040331
  Receipt Date: 20040331
  Transmission Date: 20041129
  Serious: Yes (Life-Threatening, Hospitalization)
  Sender: FDA-Public Use
  Company Number: None

PATIENT
  Sex: Female
  Weight: 76.2043 kg

DRUGS (1)
  1. PROZAC [Suspect]
     Indication: DEPRESSION
     Dosage: 1 CAPSUL DAILY

REACTIONS (4)
  - INSOMNIA [None]
  - MANIA [None]
  - SUICIDE ATTEMPT [None]
  - THINKING ABNORMAL [None]
